FAERS Safety Report 19773323 (Version 1)
Quarter: 2021Q3

REPORT INFORMATION
  Report Type: Spontaneous
  Country: US (occurrence: US)
  Receive Date: 20210901
  Receipt Date: 20210901
  Transmission Date: 20211014
  Serious: No
  Sender: FDA-Public Use
  Company Number: US-ORGANON-O2108USA001178

PATIENT
  Sex: Male

DRUGS (4)
  1. WATER FOR INJECTION [Suspect]
     Active Substance: WATER
     Dosage: UNK
     Dates: start: 2006
  2. WATER FOR INJECTION [Suspect]
     Active Substance: WATER
     Dosage: UNK
     Dates: start: 20210729
  3. PREGNYL [Suspect]
     Active Substance: CHORIOGONADOTROPIN ALFA
     Dosage: UNK
     Dates: start: 2006
  4. PREGNYL [Suspect]
     Active Substance: CHORIOGONADOTROPIN ALFA
     Dosage: UNK
     Dates: start: 20210729

REACTIONS (4)
  - Accidental exposure to product [Unknown]
  - No adverse event [Unknown]
  - Product leakage [Unknown]
  - Exposure via skin contact [Unknown]

NARRATIVE: CASE EVENT DATE: 20210729
